FAERS Safety Report 6822078-8 (Version None)
Quarter: 2010Q3

REPORT INFORMATION
  Report Type: 
  Country: None (occurrence: None)
  Receive Date: 20100706
  Receipt Date: 20100706
  Transmission Date: 20110219
  Serious: Yes (Life-Threatening, Hospitalization)
  Sender: FDA-Public Use
  Company Number: None

PATIENT
  Age: 79 Year
  Sex: Male
  Weight: 79 kg

DRUGS (1)
  1. HEPARIN [Suspect]
     Indication: CORONARY ARTERIAL STENT INSERTION
     Dosage: 6500 UNITS ONCE IV
     Route: 042
     Dates: start: 20100623, end: 20100623

REACTIONS (2)
  - CATHETER SITE DISCHARGE [None]
  - HEPARIN-INDUCED THROMBOCYTOPENIA [None]
